FAERS Safety Report 11450991 (Version 1)
Quarter: 2015Q3

REPORT INFORMATION
  Report Type: Spontaneous
  Country: US (occurrence: None)
  Receive Date: 20150902
  Receipt Date: 20150902
  Transmission Date: 20151125
  Serious: Yes (Life-Threatening, Hospitalization)
  Sender: FDA-Public Use
  Company Number: None

PATIENT
  Age: 77 Year
  Sex: Male
  Weight: 127.01 kg

DRUGS (11)
  1. METOPROLOL TART [Concomitant]
     Active Substance: METOPROLOL TARTRATE
  2. LEVETIRACETAM. [Concomitant]
     Active Substance: LEVETIRACETAM
  3. OMEPRAZOLE. [Concomitant]
     Active Substance: OMEPRAZOLE
  4. C-PAP MACHINE [Concomitant]
     Active Substance: DEVICE
  5. METFORMIN [Concomitant]
     Active Substance: METFORMIN HYDROCHLORIDE
  6. ATORVASTATIN - EQUIVALENT TO LIPITOR 20MG TAB [Suspect]
     Active Substance: ATORVASTATIN
     Indication: BLOOD CHOLESTEROL
     Dosage: 10 MG + 20 MG 1 PILL 1 AT NIGHT BY MOUTH
     Route: 048
  7. POTASSIUM CL ER [Concomitant]
  8. VITAMIN B12 [Concomitant]
     Active Substance: CYANOCOBALAMIN
  9. IRBESARTAN. [Concomitant]
     Active Substance: IRBESARTAN
  10. DULERA [Concomitant]
     Active Substance: FORMOTEROL FUMARATE DIHYDRATE\MOMETASONE FUROATE
  11. D3 [Concomitant]
     Active Substance: 25-HYDROXYCHOLECALCIFEROL, 5-TRANS-

REACTIONS (13)
  - Confusional state [None]
  - Chills [None]
  - Feeling cold [None]
  - Head discomfort [None]
  - Tremor [None]
  - Disorientation [None]
  - Seizure [None]
  - Amnesia [None]
  - Memory impairment [None]
  - Hyperhidrosis [None]
  - Blood glucose increased [None]
  - Oxygen saturation decreased [None]
  - Crying [None]

NARRATIVE: CASE EVENT DATE: 20140110
